FAERS Safety Report 5225669-3 (Version None)
Quarter: 2007Q1

REPORT INFORMATION
  Report Type: 
  Country: None (occurrence: None)
  Receive Date: 20061201
  Receipt Date: 20061101
  Transmission Date: 20070707
  Serious: No
  Sender: FDA-Public Use
  Company Number: US200611000290

PATIENT
  Age: 62 Year
  Sex: Female

DRUGS (11)
  1. CYMBALTA [Suspect]
     Indication: PARKINSON'S DISEASE
     Dosage: 30 MG
     Dates: start: 20061027
  2. HYDROCODONE BITARTRATE [Concomitant]
  3. AMANTADINE HCL [Concomitant]
  4. CARBIDOPA W/LEVODOPA (CARBIDOPA, LEVODOPA) [Concomitant]
  5. COMTAN [Concomitant]
  6. MIRAPEX [Concomitant]
  7. PROVIGIL [Concomitant]
  8. ENALAPRIL MALEATE [Concomitant]
  9. DIAZEPAM [Concomitant]
  10. INSULIN (INSULIN) [Concomitant]
  11. HUMALOG /GFR/ (INSULIN LISPRO) [Concomitant]

REACTIONS (3)
  - MOVEMENT DISORDER [None]
  - MUSCLE TIGHTNESS [None]
  - STOMACH DISCOMFORT [None]
